FAERS Safety Report 5194833-4 (Version None)
Quarter: 2006Q4

REPORT INFORMATION
  Report Type: 
  Country: None (occurrence: None)
  Receive Date: 20061227
  Receipt Date: 20061218
  Transmission Date: 20070319
  Serious: Yes (Death, Hospitalization)
  Sender: FDA-Public Use
  Company Number: 2005EN000370

PATIENT
  Age: 1 Year
  Sex: Male
  Weight: 12 kg

DRUGS (5)
  1. ONCASPAR [Suspect]
     Indication: ACUTE LYMPHOCYTIC LEUKAEMIA
     Dosage: 1275 IU; IM
     Route: 030
     Dates: start: 20021202, end: 20021202
  2. VINCRISTINE [Suspect]
     Indication: ACUTE LYMPHOCYTIC LEUKAEMIA
     Dosage: 0.8 MG; QW
     Dates: start: 20021129, end: 20021220
  3. DEXAMETHASONE [Suspect]
     Indication: ACUTE LYMPHOCYTIC LEUKAEMIA
     Dosage: 3 MG; QD
     Dates: start: 20021129, end: 20021226
  4. CYTARABINE [Suspect]
     Indication: ACUTE LYMPHOCYTIC LEUKAEMIA
     Dosage: 30 MG; IT
     Dates: start: 20021128, end: 20021128
  5. METHOTREXATE [Suspect]
     Indication: ACUTE LYMPHOCYTIC LEUKAEMIA
     Dosage: 8 MG; QW; IT
     Dates: start: 20021206, end: 20021226

REACTIONS (10)
  - ASCITES [None]
  - CSF BACTERIA IDENTIFIED [None]
  - DISSEMINATED INTRAVASCULAR COAGULATION [None]
  - ENTEROBACTER SEPSIS [None]
  - INTRACRANIAL HYPOTENSION [None]
  - MENINGITIS [None]
  - PLEURAL EFFUSION [None]
  - RENAL FAILURE [None]
  - RESPIRATORY FAILURE [None]
  - SYSTEMIC INFLAMMATORY RESPONSE SYNDROME [None]
